FAERS Safety Report 5457604-7 (Version None)
Quarter: 2007Q3

REPORT INFORMATION
  Report Type: 
  Country: None (occurrence: None)
  Receive Date: 20070918
  Receipt Date: 20070911
  Transmission Date: 20080115
  Serious: Yes (Other)
  Sender: FDA-Public Use
  Company Number: DE-BOEHRINGER INGELHEIM PHARMACEUTICALS, INC.-2007-DE-05408DE

PATIENT
  Sex: Male
  Weight: 112 kg

DRUGS (9)
  1. TAMSULOSIN HCL [Suspect]
     Indication: BENIGN PROSTATIC HYPERPLASIA
     Route: 048
     Dates: start: 20070801
  2. PREDNISOLONE [Concomitant]
  3. AMLODIPINE BESILAT [Concomitant]
  4. TORSEMIDE [Concomitant]
  5. THEOPHYLLINE [Concomitant]
  6. DYNORM PLUS [Concomitant]
  7. FORMOTEROL FUMARATE [Concomitant]
  8. TIOTROPIUM BROMID [Concomitant]
  9. AEROBEC [Concomitant]

REACTIONS (2)
  - DYSPNOEA EXERTIONAL [None]
  - RESPIRATORY FAILURE [None]
